FAERS Safety Report 15591209 (Version 1)
Quarter: 2018Q4

REPORT INFORMATION
  Report Type: Spontaneous
  Country: CN (occurrence: CN)
  Receive Date: 20181107
  Receipt Date: 20181107
  Transmission Date: 20190205
  Serious: Yes (Hospitalization)
  Sender: FDA-Public Use
  Company Number: CN-ASTRAZENECA-2018SF45807

PATIENT
  Age: 20715 Day
  Sex: Female
  Weight: 60 kg

DRUGS (3)
  1. FENOFIBRATE. [Suspect]
     Active Substance: FENOFIBRATE
     Indication: HYPERLIPIDAEMIA
     Route: 048
     Dates: start: 20180913, end: 20180916
  2. SAXAGLIPTIN [Suspect]
     Active Substance: SAXAGLIPTIN
     Indication: HYPERGLYCAEMIA
     Route: 048
     Dates: start: 20180913, end: 20180916
  3. ACARBOSE. [Concomitant]
     Active Substance: ACARBOSE
     Indication: HYPERGLYCAEMIA
     Route: 048
     Dates: start: 20180913, end: 20180916

REACTIONS (1)
  - Generalised oedema [Recovering/Resolving]

NARRATIVE: CASE EVENT DATE: 20180917
